FAERS Safety Report 11596329 (Version 2)
Quarter: 2015Q4

REPORT INFORMATION
  Report Type: Spontaneous
  Country: US (occurrence: US)
  Receive Date: 20151006
  Receipt Date: 20151209
  Transmission Date: 20160304
  Serious: Yes (Hospitalization, Other)
  Sender: FDA-Public Use
  Company Number: US-PFIZER INC-2015331017

PATIENT
  Age: 3 Year
  Sex: Male
  Weight: 14.5 kg

DRUGS (7)
  1. GENOTROPIN [Suspect]
     Active Substance: SOMATROPIN
     Dosage: 0.5 MG, DAILY
     Route: 058
  2. DDAVP [Suspect]
     Active Substance: DESMOPRESSIN ACETATE
     Dosage: 0.1 MG, 1X/DAY
     Route: 048
  3. CORTEF [Concomitant]
     Active Substance: HYDROCORTISONE
     Dosage: 2.5 MG, 3X/DAY
     Route: 048
  4. SYNTHROID [Concomitant]
     Active Substance: LEVOTHYROXINE SODIUM
     Dosage: 25 UG, UNK (AC-BREAKFAST)
     Route: 048
  5. AMOXICILLIN. [Concomitant]
     Active Substance: AMOXICILLIN
  6. LEVOTHROID [Concomitant]
     Active Substance: LEVOTHYROXINE SODIUM
     Dosage: 50 UG, DAILY (Q DAY)
     Route: 048
  7. DDAVP [Suspect]
     Active Substance: DESMOPRESSIN ACETATE
     Dosage: 0.05MG AM AND 0.075MG PM, 2X/DAY
     Route: 048

REACTIONS (14)
  - Dehydration [Unknown]
  - Pyrexia [Unknown]
  - Hypernatraemia [None]
  - Hypermagnesaemia [None]
  - Neurological symptom [Unknown]
  - Tachycardia [Unknown]
  - Haematocrit decreased [None]
  - Electrolyte imbalance [Unknown]
  - Therapy cessation [None]
  - Hypercalcaemia [None]
  - Urine output decreased [None]
  - Cerebrovascular accident [Unknown]
  - Blood potassium abnormal [None]
  - Haemoglobin decreased [None]
